FAERS Safety Report 9253256 (Version 1)
Quarter: 2013Q2

REPORT INFORMATION
  Report Type: Spontaneous
  Country: FR (occurrence: FR)
  Receive Date: 20130424
  Receipt Date: 20130424
  Transmission Date: 20140414
  Serious: Yes (Disabling)
  Sender: FDA-Public Use
  Company Number: FR-ELI_LILLY_AND_COMPANY-FR201304005228

PATIENT
  Age: 55 Year
  Sex: Male

DRUGS (7)
  1. EFIENT [Suspect]
     Indication: STENT PLACEMENT
     Dosage: 10 MG, UNK
     Route: 048
     Dates: start: 20121210, end: 20130125
  2. KARDEGIC [Concomitant]
     Dosage: 75 MG, UNK
  3. MONOTILDIEM [Concomitant]
  4. INEXIUM [Concomitant]
  5. PERMIXON [Concomitant]
  6. TAHOR [Concomitant]
     Dosage: 10 MG, UNK
     Dates: end: 20130107
  7. VALSARTAN [Concomitant]

REACTIONS (4)
  - Dyspnoea [Not Recovered/Not Resolved]
  - Asthenia [Not Recovered/Not Resolved]
  - Chest pain [Not Recovered/Not Resolved]
  - Pain in extremity [Not Recovered/Not Resolved]
